FAERS Safety Report 4328224-2 (Version None)
Quarter: 2004Q1

REPORT INFORMATION
  Report Type: 
  Country: None (occurrence: None)
  Receive Date: 20040325
  Receipt Date: 20031211
  Transmission Date: 20041129
  Serious: No
  Sender: FDA-Public Use
  Company Number: USA-2003-0012061

PATIENT
  Age: 80 Year
  Sex: Female

DRUGS (3)
  1. SPECTRACEF [Suspect]
     Indication: COUGH
     Dosage: 200 MG, BID
  2. SUNTHROID [Concomitant]
  3. DETROL [Concomitant]

REACTIONS (1)
  - DIARRHOEA [None]
